FAERS Safety Report 8319751-1 (Version None)
Quarter: 2012Q2

REPORT INFORMATION
  Report Type: 
  Country: None (occurrence: None)
  Receive Date: 20120427
  Receipt Date: 20120423
  Transmission Date: 20120825
  Serious: Yes (Life-Threatening, Other)
  Sender: FDA-Public Use
  Company Number: PHEH2012US005788

PATIENT
  Age: 81 Year
  Sex: Female

DRUGS (3)
  1. DIOVAN HCT [Suspect]
     Indication: LABILE HYPERTENSION
  2. METOPROLOL SUCCINATE EXTENDED RELEASE [Suspect]
     Dosage: UNK UKN, UNK
  3. COZAAR [Suspect]
     Dosage: UNK UKN, UNK

REACTIONS (5)
  - APPARENT DEATH [None]
  - PAIN [None]
  - DYSPNOEA [None]
  - CONFUSIONAL STATE [None]
  - PULMONARY FIBROSIS [None]
